FAERS Safety Report 7733980-7 (Version None)
Quarter: 2011Q3

REPORT INFORMATION
  Report Type: 
  Country: None (occurrence: None)
  Receive Date: 20110906
  Receipt Date: 20110906
  Transmission Date: 20111222
  Serious: Yes (Other)
  Sender: FDA-Public Use
  Company Number: None

PATIENT
  Sex: Male

DRUGS (2)
  1. GLIMEPIRIDE [Suspect]
     Indication: DIABETES MELLITUS
     Dosage: 4MG QD PO
     Route: 048
     Dates: start: 20101101, end: 20110901
  2. GLIMEPIRIDE [Suspect]

REACTIONS (3)
  - FATIGUE [None]
  - PRODUCT SUBSTITUTION ISSUE [None]
  - HYPERGLYCAEMIA [None]
